FAERS Safety Report 23170766 (Version 1)
Quarter: 2023Q4

REPORT INFORMATION
  Report Type: Spontaneous
  Country: US (occurrence: None)
  Receive Date: 20231109
  Receipt Date: 20231109
  Transmission Date: 20240110
  Serious: Yes (Other)
  Sender: FDA-Public Use
  Company Number: None

PATIENT
  Age: 49 Year
  Sex: Female

DRUGS (1)
  1. INFLIXIMAB [Suspect]
     Active Substance: INFLIXIMAB
     Dosage: 1100MG Q8W

REACTIONS (5)
  - Palpitations [None]
  - Blood pressure increased [None]
  - Dizziness [None]
  - Dizziness postural [None]
  - Postural orthostatic tachycardia syndrome [None]
